FAERS Safety Report 7541063-4 (Version None)
Quarter: 2011Q2

REPORT INFORMATION
  Report Type: 
  Country: None (occurrence: None)
  Receive Date: 20110610
  Receipt Date: 20110531
  Transmission Date: 20111010
  Serious: Yes (Other)
  Sender: FDA-Public Use
  Company Number: PHHY2011FR41520

PATIENT
  Sex: Female
  Weight: 65 kg

DRUGS (4)
  1. CACIT [Concomitant]
  2. LYTAK [Concomitant]
  3. CRESTOR [Suspect]
     Indication: HYPERCHOLESTEROLAEMIA
  4. FEMARA [Suspect]
     Indication: BREAST CANCER STAGE II
     Dosage: 2.5 MG, QD
     Dates: start: 20071101, end: 20110501

REACTIONS (5)
  - PLATELET DISORDER [None]
  - CYTOLYTIC HEPATITIS [None]
  - WHITE BLOOD CELL DISORDER [None]
  - ASTHENIA [None]
  - HAIRY CELL LEUKAEMIA [None]
